FAERS Safety Report 10062922 (Version 1)
Quarter: 2014Q2

REPORT INFORMATION
  Report Type: Spontaneous
  Country: NZ (occurrence: NZ)
  Receive Date: 20140407
  Receipt Date: 20140407
  Transmission Date: 20141212
  Serious: Yes (Hospitalization, Other)
  Sender: FDA-Public Use
  Company Number: NZ-ASTRAZENECA-2014SE22222

PATIENT
  Age: 18663 Day
  Sex: Female

DRUGS (1)
  1. BRILINTA [Suspect]
     Route: 048
     Dates: start: 20140214, end: 20140327

REACTIONS (4)
  - Adverse drug reaction [Unknown]
  - Myocardial infarction [Recovering/Resolving]
  - Haemoglobin decreased [Unknown]
  - Faeces discoloured [Unknown]
